FAERS Safety Report 9292565 (Version 1)
Quarter: 2013Q2

REPORT INFORMATION
  Report Type: Spontaneous
  Country: IT (occurrence: IT)
  Receive Date: 20130516
  Receipt Date: 20130516
  Transmission Date: 20140414
  Serious: Yes (Other)
  Sender: FDA-Public Use
  Company Number: IT-PFIZER INC-2013150592

PATIENT
  Age: 66 Year
  Sex: Female
  Weight: 45 kg

DRUGS (6)
  1. EPIRUBICIN HCL [Suspect]
     Indication: INVASIVE DUCTAL BREAST CARCINOMA
     Dosage: 105 MG, CYCLIC
     Route: 042
     Dates: start: 20130121, end: 20130211
  2. ENDOXAN-BAXTER [Suspect]
     Indication: INVASIVE DUCTAL BREAST CARCINOMA
     Dosage: 700 MG, CYCLIC
     Route: 042
     Dates: start: 20130121, end: 20130211
  3. FLUOROURACIL [Suspect]
     Indication: INVASIVE DUCTAL BREAST CARCINOMA
     Dosage: 700 MG, CYCLIC
     Route: 042
     Dates: start: 20130121, end: 20130211
  4. EUTIROX [Concomitant]
     Indication: HYPOTHYROIDISM
     Dosage: UNK
  5. ALIFLUS DISKUS [Concomitant]
     Indication: ASTHMA
     Dosage: UNK
  6. SIVASTIN [Concomitant]
     Indication: HYPERCHOLESTEROLAEMIA

REACTIONS (3)
  - Neutropenia [Recovered/Resolved]
  - Constipation [Recovered/Resolved]
  - Asthenia [Recovered/Resolved]
